FAERS Safety Report 15451355 (Version 4)
Quarter: 2018Q4

REPORT INFORMATION
  Report Type: Report from Study
  Country: US (occurrence: US)
  Receive Date: 20181001
  Receipt Date: 20181227
  Transmission Date: 20190204
  Serious: Yes (Death, Hospitalization, Other)
  Sender: FDA-Public Use
  Company Number: US-ROCHE-2177058

PATIENT
  Age: 65 Year
  Sex: Female
  Weight: 38.3 kg

DRUGS (9)
  1. COBIMETINIB. [Suspect]
     Active Substance: COBIMETINIB
     Indication: CHOLANGIOCARCINOMA
     Dosage: CYCLE 28?MOST RECENT DOSE PRIOR TO SAE ON 18/AUG/2018
     Route: 048
     Dates: start: 20180712
  2. ONDANSETRON [Concomitant]
     Active Substance: ONDANSETRON
  3. POLYETHYLENE GLYCOL [Concomitant]
     Active Substance: POLYETHYLENE GLYCOLS
  4. PANTOPRAZOLE [Concomitant]
     Active Substance: PANTOPRAZOLE
  5. ATEZOLIZUMAB. [Suspect]
     Active Substance: ATEZOLIZUMAB
     Indication: CHOLANGIOCARCINOMA
     Dosage: CYCLE 28 DAY 1 AND DAY 15?MOST RECENT DOSE PRIOR TO SAE ON 08/AUG/2018
     Route: 042
     Dates: start: 20180712
  6. FUROSEMIDE. [Concomitant]
     Active Substance: FUROSEMIDE
  7. OXYCODONE [Concomitant]
     Active Substance: OXYCODONE
  8. SACCHAROMYCES BOULARDII [Concomitant]
     Active Substance: SACCHAROMYCES CEREVISIAE
  9. LASIX [Suspect]
     Active Substance: FUROSEMIDE
     Indication: CHOLANGIOCARCINOMA
     Route: 065

REACTIONS (5)
  - Disease progression [Fatal]
  - Constipation [Unknown]
  - Small intestinal perforation [Fatal]
  - Hypokalaemia [Unknown]
  - Lymphocyte count decreased [Unknown]

NARRATIVE: CASE EVENT DATE: 20180818
